FAERS Safety Report 6366987-5 (Version None)
Quarter: 2009Q3

REPORT INFORMATION
  Report Type: 
  Country: None (occurrence: None)
  Receive Date: 20090915
  Receipt Date: 20090904
  Transmission Date: 20100115
  Serious: Yes (Hospitalization)
  Sender: FDA-Public Use
  Company Number: GXKR2009JP08489

PATIENT
  Age: 69 Year
  Sex: Male

DRUGS (7)
  1. RIFAMPICIN [Suspect]
     Indication: PULMONARY TUBERCULOSIS
     Dosage: 450 MG, ORAL
     Route: 048
  2. ESANBUTOL (NGX) (ETHAMBUTOL) TABLET [Suspect]
     Indication: PULMONARY TUBERCULOSIS
     Dosage: 750 MG, ORAL
     Route: 048
  3. ISONIAZID [Suspect]
     Indication: PULMONARY TUBERCULOSIS
     Dosage: 300 MG, ORAL
     Route: 048
  4. PREDNISOLONE [Suspect]
     Indication: INTERSTITIAL LUNG DISEASE
  5. PREDNISOLONE [Suspect]
     Indication: RHEUMATOID ARTHRITIS
  6. NEORAL [Suspect]
     Indication: INTERSTITIAL LUNG DISEASE
  7. NEORAL [Suspect]
     Indication: RHEUMATOID ARTHRITIS

REACTIONS (8)
  - ABDOMINAL PAIN [None]
  - ADRENAL INSUFFICIENCY [None]
  - ARTHRALGIA [None]
  - DRUG INTERACTION [None]
  - DRUG LEVEL DECREASED [None]
  - PYREXIA [None]
  - RENAL IMPAIRMENT [None]
  - SHOCK [None]
